FAERS Safety Report 11891423 (Version 1)
Quarter: 2016Q1

REPORT INFORMATION
  Report Type: Spontaneous
  Country: US (occurrence: None)
  Receive Date: 20160105
  Receipt Date: 20160105
  Transmission Date: 20160526
  Serious: Yes (Death, Life-Threatening, Hospitalization, Disabling)
  Sender: FDA-Public Use
  Company Number: None

PATIENT
  Age: 81 Year
  Sex: Male

DRUGS (1)
  1. PROLIA [Suspect]
     Active Substance: DENOSUMAB
     Indication: OSTEOPOROSIS
     Dosage: 1 SHOT EVERY 6 MONTHS, GIVEN INTO/UNDER THE SKIN

REACTIONS (6)
  - Renal failure [None]
  - Contraindicated drug administered [None]
  - Myocardial infarction [None]
  - Endocarditis [None]
  - Blood calcium decreased [None]
  - Injection site cellulitis [None]

NARRATIVE: CASE EVENT DATE: 20140818
